FAERS Safety Report 18889591 (Version 1)
Quarter: 2021Q1

REPORT INFORMATION
  Report Type: Spontaneous
  Country: US (occurrence: US)
  Receive Date: 20210213
  Receipt Date: 20210213
  Transmission Date: 20210420
  Serious: No
  Sender: FDA-Public Use
  Company Number: US-TEVA-2021-US-1878178

PATIENT
  Age: 40 Year
  Sex: Female
  Weight: 113.4 kg

DRUGS (2)
  1. ADIPEX?P [Suspect]
     Active Substance: PHENTERMINE HYDROCHLORIDE
     Indication: WEIGHT DECREASED
     Route: 065
  2. ADIPEX?P [Suspect]
     Active Substance: PHENTERMINE HYDROCHLORIDE
     Route: 065
     Dates: start: 202012

REACTIONS (1)
  - Drug ineffective [Not Recovered/Not Resolved]
